FAERS Safety Report 5627013-6 (Version None)
Quarter: 2008Q1

REPORT INFORMATION
  Report Type: 
  Country: None (occurrence: None)
  Receive Date: 20080122
  Receipt Date: 20071116
  Transmission Date: 20080703
  Serious: Yes (Other)
  Sender: FDA-Public Use
  Company Number: PHEH2007US14172

PATIENT
  Age: 76 Year
  Sex: Female

DRUGS (5)
  1. EXFORGE [Suspect]
     Indication: HYPERTENSION
     Dosage: 5/320 MG, ORAL
     Route: 048
  2. ATENOLOL [Concomitant]
  3. ESTRACE [Concomitant]
  4. SYNTHROID [Concomitant]
  5. XANAX [Concomitant]

REACTIONS (7)
  - ASTHENIA [None]
  - DIVERTICULITIS [None]
  - DIZZINESS [None]
  - FATIGUE [None]
  - MUSCLE SPASMS [None]
  - SYNCOPE [None]
  - VAGINAL DISORDER [None]
